FAERS Safety Report 21694698 (Version 2)
Quarter: 2022Q4

REPORT INFORMATION
  Report Type: Report from Study
  Country: MX (occurrence: MX)
  Receive Date: 20221207
  Receipt Date: 20221219
  Transmission Date: 20230113
  Serious: Yes (Other)
  Sender: FDA-Public Use
  Company Number: MX-002147023-PHHY2017MX087755

PATIENT
  Age: 81 Year
  Sex: Female
  Weight: 62 kg

DRUGS (7)
  1. EXFORGE [Suspect]
     Active Substance: AMLODIPINE BESYLATE\VALSARTAN
     Indication: Hypertension
     Dosage: 1 DOSAGE FORM, QD (AMLODIPINE 5/VALSARTAN 160 MG)
     Route: 065
  2. EXFORGE [Suspect]
     Active Substance: AMLODIPINE BESYLATE\VALSARTAN
     Dosage: 0.5 DOSAGE FORM, QD ((SOMETIMES WHEN BLOOD PRESSURE INCREASED)
     Route: 065
  3. EXFORGE [Suspect]
     Active Substance: AMLODIPINE BESYLATE\VALSARTAN
     Dosage: 1 DOSAGE FORM, QD (5/160MG)
     Route: 048
     Dates: start: 2019
  4. LIBERTY [Concomitant]
     Indication: Product used for unknown indication
     Dosage: UNK
     Route: 065
  5. LACTULAX [Concomitant]
     Indication: Product used for unknown indication
     Dosage: UNK
     Route: 065
  6. PREGABALIN [Concomitant]
     Active Substance: PREGABALIN
     Indication: Rheumatoid arthritis
     Dosage: 150 MG, QD (STARTED BEFORE 10 YEARS AGO)
     Route: 065
  7. CALCIUM [Concomitant]
     Active Substance: CALCIUM
     Indication: Rheumatoid arthritis
     Dosage: 1 DOSAGE FORM, QD, (STARTED BEFORE 10 YEARS AGO)
     Route: 048

REACTIONS (10)
  - Deafness [Not Recovered/Not Resolved]
  - Blood pressure increased [Unknown]
  - Influenza [Unknown]
  - Visual impairment [Unknown]
  - Dysphonia [Unknown]
  - Amnesia [Not Recovered/Not Resolved]
  - Bladder prolapse [Not Recovered/Not Resolved]
  - Urinary incontinence [Not Recovered/Not Resolved]
  - Wrong technique in product usage process [Unknown]
  - Off label use [Unknown]

NARRATIVE: CASE EVENT DATE: 20220201
